FAERS Safety Report 9085592 (Version 1)
Quarter: 2013Q1

REPORT INFORMATION
  Report Type: Report from Study
  Country: CL (occurrence: CL)
  Receive Date: 20130218
  Receipt Date: 20130218
  Transmission Date: 20140127
  Serious: Yes (Other)
  Sender: FDA-Public Use
  Company Number: CL-ACCORD-016415

PATIENT
  Age: 30 Year
  Sex: Female

DRUGS (9)
  1. COLONY STIMULATING FACTORS [Concomitant]
     Indication: PROPHYLAXIS
     Dosage: 300 MCG SC / DAY FROM DAY + 4 AND TO?NEUTROPHIL RECOVERY
  2. CIPROFLOXACIN [Concomitant]
     Indication: PROPHYLAXIS
  3. ETOPOSIDE [Suspect]
     Indication: DIFFUSE LARGE B-CELL LYMPHOMA
     Dosage: 400-800 MG/M2
  4. CYTARABINE [Suspect]
     Indication: DIFFUSE LARGE B-CELL LYMPHOMA
     Dosage: 800-1600 MG/M2
  5. MELPHALAN [Suspect]
     Indication: DIFFUSE LARGE B-CELL LYMPHOMA
  6. CARMUSTINE [Suspect]
     Indication: DIFFUSE LARGE B-CELL LYMPHOMA
  7. COTRIMOXAZOLE [Concomitant]
     Indication: PROPHYLAXIS
     Dosage: 1 TABLET ON MONDAY,?WEDNESDAY AND FRIDAY, FROM NEUTROPHIL?RECOVERY UNTIL DAY +180
  8. ACYCLOVIR [Concomitant]
     Indication: PROPHYLAXIS
  9. FLUCONAZOLE [Concomitant]
     Indication: PROPHYLAXIS
     Dosage: FROM DAY -7 TO DAY +60
     Route: 048

REACTIONS (5)
  - Mucosal inflammation [Unknown]
  - Febrile neutropenia [Unknown]
  - Influenza [Unknown]
  - Off label use [Unknown]
  - Caecitis [Unknown]
